FAERS Safety Report 9153366 (Version 1)
Quarter: 2013Q1

REPORT INFORMATION
  Report Type: Spontaneous
  Country: US (occurrence: None)
  Receive Date: 20130304
  Receipt Date: 20130304
  Transmission Date: 20140127
  Serious: Yes (Other)
  Sender: FDA-Public Use
  Company Number: None

PATIENT
  Age: 57 Year
  Sex: Male

DRUGS (1)
  1. SOMATULINE [Suspect]
     Route: 058
     Dates: start: 20111211

REACTIONS (2)
  - Abdominal pain upper [None]
  - Confusional state [None]
